FAERS Safety Report 9780176 (Version 3)
Quarter: 2014Q1

REPORT INFORMATION
  Report Type: Spontaneous
  Country: US (occurrence: US)
  Receive Date: 20131223
  Receipt Date: 20140225
  Transmission Date: 20141002
  Serious: Yes (Death, Other)
  Sender: FDA-Public Use
  Company Number: US-GILEAD-2013-0090679

PATIENT
  Age: 82 Year
  Sex: Female
  Weight: 57.14 kg

DRUGS (8)
  1. LETAIRIS [Suspect]
     Indication: PULMONARY ARTERIAL HYPERTENSION
     Dosage: 10 MG, UNK
     Route: 048
     Dates: start: 201008
  2. LETAIRIS [Suspect]
     Indication: HYPERTENSION
  3. ADCIRCA [Concomitant]
  4. AMIODARONE [Concomitant]
  5. BUMETANIDE [Concomitant]
  6. KLOR-CON [Concomitant]
  7. SYNTHROID [Concomitant]
  8. WARFARIN [Concomitant]

REACTIONS (1)
  - Death [Fatal]
